FAERS Safety Report 26025851 (Version 1)
Quarter: 2025Q4

REPORT INFORMATION
  Report Type: Spontaneous
  Country: EU (occurrence: EU)
  Receive Date: 20251111
  Receipt Date: 20251111
  Transmission Date: 20260118
  Serious: Yes (Other)
  Sender: NOVARTIS
  Company Number: EU-JNJFOC-20251038119

PATIENT
  Age: 57 Year
  Sex: Male
  Weight: 64 kg

DRUGS (4)
  1. GALLIUM GA-68 GOZETOTIDE [Suspect]
     Active Substance: GALLIUM GA-68 GOZETOTIDE
     Indication: Hormone-dependent prostate cancer
     Dosage: 3.74 MCI, ONCE/SINGLE
     Route: 042
     Dates: start: 20211013, end: 20211013
  2. LEUPROLIDE ACETATE [Suspect]
     Active Substance: LEUPROLIDE ACETATE
     Indication: Hormone-dependent prostate cancer
     Dosage: 45 MG
     Route: 030
     Dates: start: 20211028
  3. APALUTAMIDE [Suspect]
     Active Substance: APALUTAMIDE
     Indication: Hormone-dependent prostate cancer
     Dosage: 240 MG, QD
     Route: 048
     Dates: start: 20211021
  4. ALLOPURINOL [Concomitant]
     Active Substance: ALLOPURINOL
     Indication: Product used for unknown indication
     Dosage: UNK
     Route: 065

REACTIONS (2)
  - Erectile dysfunction [Recovering/Resolving]
  - Rash maculo-papular [Recovered/Resolved]

NARRATIVE: CASE EVENT DATE: 20220113
